FAERS Safety Report 11121791 (Version 3)
Quarter: 2015Q2

REPORT INFORMATION
  Report Type: Report from Study
  Country: KR (occurrence: KR)
  Receive Date: 20150519
  Receipt Date: 20150529
  Transmission Date: 20150821
  Serious: Yes (Hospitalization, Other)
  Sender: FDA-Public Use
  Company Number: KR-BAYER-2015-102120

PATIENT
  Age: 48 Year
  Sex: Male

DRUGS (2)
  1. BETAFERON [Suspect]
     Active Substance: INTERFERON BETA-1B
     Indication: MULTIPLE SCLEROSIS
     Dosage: 1 ML, QOD
     Route: 058
     Dates: start: 20150320
  2. BETAFERON [Suspect]
     Active Substance: INTERFERON BETA-1B
     Indication: MULTIPLE SCLEROSIS
     Dosage: UNK
     Dates: start: 2002, end: 201408

REACTIONS (7)
  - Visual impairment [None]
  - Asthenia [None]
  - Diplegia [None]
  - Back pain [Not Recovered/Not Resolved]
  - Injection site mass [Not Recovered/Not Resolved]
  - Injection site pain [None]
  - General physical health deterioration [None]

NARRATIVE: CASE EVENT DATE: 2015
